FAERS Safety Report 19591620 (Version 1)
Quarter: 2021Q3

REPORT INFORMATION
  Report Type: Spontaneous
  Country: US (occurrence: US)
  Receive Date: 20210721
  Receipt Date: 20210721
  Transmission Date: 20211014
  Serious: Yes (Other)
  Sender: FDA-Public Use
  Company Number: None

PATIENT
  Sex: Female

DRUGS (1)
  1. COMPAZINE [Suspect]
     Active Substance: PROCHLORPERAZINE MALEATE
     Indication: MIGRAINE
     Dosage: ?          QUANTITY:12 DF DOSAGE FORM;OTHER FREQUENCY:1 TAB 4XDA AS NEED;?
     Route: 048
     Dates: start: 20210603, end: 20210606

REACTIONS (2)
  - Constipation [None]
  - Abdominal pain [None]
